FAERS Safety Report 4401752-7 (Version None)
Quarter: 2004Q3

REPORT INFORMATION
  Report Type: 
  Country: None (occurrence: None)
  Receive Date: 20040719
  Receipt Date: 20040714
  Transmission Date: 20050211
  Serious: Yes (Death, Hospitalization)
  Sender: FDA-Public Use
  Company Number: PHBS2004US09396

PATIENT
  Age: 16 Year
  Sex: Male
  Weight: 27 kg

DRUGS (4)
  1. CYCLOSPORINE [Suspect]
     Indication: RENAL TRANSPLANT
  2. MYCOPHENOLATE MOFETIL [Suspect]
  3. PREDNISONE [Suspect]
  4. METHYLPREDNISOLONE [Concomitant]

REACTIONS (21)
  - BLOOD CREATININE INCREASED [None]
  - BLOOD PRESSURE INCREASED [None]
  - BLOOD UREA INCREASED [None]
  - CARDIO-RESPIRATORY ARREST [None]
  - COMMUNICATION DISORDER [None]
  - DECREASED APPETITE [None]
  - DECREASED INTEREST [None]
  - DEPRESSED LEVEL OF CONSCIOUSNESS [None]
  - DYSPNOEA [None]
  - HAEMATOCRIT DECREASED [None]
  - HAEMOGLOBIN DECREASED [None]
  - HEART RATE INCREASED [None]
  - HUMAN POLYOMAVIRUS INFECTION [None]
  - HYPOTONIA [None]
  - JC VIRUS INFECTION [None]
  - MENTAL STATUS CHANGES [None]
  - NEPHROPATHY [None]
  - NYSTAGMUS [None]
  - PERSONALITY CHANGE [None]
  - PROGRESSIVE MULTIFOCAL LEUKOENCEPHALOPATHY [None]
  - REFLEXES ABNORMAL [None]
